FAERS Safety Report 9227622 (Version 1)
Quarter: 2013Q1

REPORT INFORMATION
  Report Type: Spontaneous
  Country: US (occurrence: None)
  Receive Date: 20121012
  Receipt Date: 20121012
  Transmission Date: 20140127
  Serious: Yes (Other)
  Sender: FDA-Public Use
  Company Number: 1000030447

PATIENT
  Age: 40 Year
  Sex: Female

DRUGS (2)
  1. ESCITALOPRAM [Suspect]
     Indication: DEPRESSION
     Route: 048
     Dates: start: 20120501, end: 20120505
  2. ESCITALOPRAM [Suspect]
     Indication: ANXIETY
     Route: 048
     Dates: start: 20120501, end: 20120505

REACTIONS (5)
  - Suicidal ideation [None]
  - Panic attack [None]
  - Tachyphrenia [None]
  - Insomnia [None]
  - Anxiety [None]
